FAERS Safety Report 9442938 (Version 1)
Quarter: 2013Q3

REPORT INFORMATION
  Report Type: Spontaneous
  Country: US (occurrence: US)
  Receive Date: 20130806
  Receipt Date: 20130806
  Transmission Date: 20140515
  Serious: Yes (Hospitalization, Other)
  Sender: FDA-Public Use
  Company Number: US-RB-056736-13

PATIENT
  Age: 17 Year
  Sex: Male

DRUGS (1)
  1. DELSYM ADULT ORANGE [Suspect]
     Indication: DRUG ABUSE
     Route: 048

REACTIONS (5)
  - Drug abuse [Unknown]
  - Tremor [Unknown]
  - Eye movement disorder [Unknown]
  - Memory impairment [Unknown]
  - Vomiting [Unknown]
